FAERS Safety Report 5786243-3 (Version None)
Quarter: 2008Q2

REPORT INFORMATION
  Report Type: 
  Country: None (occurrence: None)
  Receive Date: 20080624
  Receipt Date: 20080613
  Transmission Date: 20081010
  Serious: Yes (Other)
  Sender: FDA-Public Use
  Company Number: IT-SANOFI-SYNTHELABO-A06200800319

PATIENT
  Sex: Female

DRUGS (2)
  1. ENAPREN [Concomitant]
     Indication: HYPERTENSION
     Route: 048
     Dates: start: 20030101
  2. PLAVIX [Suspect]
     Indication: CAROTID ARTERY STENOSIS
     Route: 048
     Dates: start: 20080105, end: 20080310

REACTIONS (3)
  - HEADACHE [None]
  - HYPERTENSIVE CRISIS [None]
  - RASH [None]
